FAERS Safety Report 8159459-9 (Version None)
Quarter: 2012Q1

REPORT INFORMATION
  Report Type: 
  Country: None (occurrence: None)
  Receive Date: 20120223
  Receipt Date: 20120215
  Transmission Date: 20120608
  Serious: Yes (Hospitalization)
  Sender: FDA-Public Use
  Company Number: US-BAYER-2011-023720

PATIENT
  Age: 16 Year
  Sex: Female
  Weight: 59.864 kg

DRUGS (3)
  1. YAZ [Suspect]
     Indication: CONTRACEPTION
     Dosage: UNK
     Route: 048
     Dates: start: 20090105, end: 20090211
  2. YAZ [Suspect]
     Indication: ACNE
  3. CEFUROXIME [Concomitant]
     Dosage: 250 MG, UNK
     Route: 048
     Dates: start: 20090209

REACTIONS (4)
  - INTRACARDIAC THROMBUS [None]
  - VENA CAVA THROMBOSIS [None]
  - PULMONARY EMBOLISM [None]
  - PULMONARY INFARCTION [None]
